FAERS Safety Report 10486505 (Version 1)
Quarter: 2014Q3

REPORT INFORMATION
  Report Type: Spontaneous
  Country: SZ (occurrence: None)
  Receive Date: 20140929
  Receipt Date: 20140929
  Transmission Date: 20150326
  Serious: Yes (Other)
  Sender: FDA-Public Use
  Company Number: 20140618

PATIENT
  Age: 84 Year
  Sex: Female
  Weight: 70 kg

DRUGS (3)
  1. CARMEN (LECANIDIPINE) [Concomitant]
  2. BISOPROLOL FUMARATE. [Concomitant]
     Active Substance: BISOPROLOL FUMARATE
  3. FERINJECT [Suspect]
     Active Substance: FERRIC CARBOXYMALTOSE
     Indication: IRON DEFICIENCY ANAEMIA
     Dosage: 1000 MG (1000 MG, 1 INJECTION TOTAL)IVDRIP IN 30 MTS.

REACTIONS (3)
  - Myalgia [None]
  - Sleep disorder [None]
  - Fatigue [None]
